FAERS Safety Report 9964451 (Version 2)
Quarter: 2014Q1

REPORT INFORMATION
  Report Type: Spontaneous
  Country: US (occurrence: US)
  Receive Date: 20140305
  Receipt Date: 20140326
  Transmission Date: 20141002
  Serious: Yes (Hospitalization)
  Sender: FDA-Public Use
  Company Number: US-B.I. PHARMACEUTICALS,INC./RIDGEFIELD-2014-BI-09280BP

PATIENT
  Age: 57 Year
  Sex: Male
  Weight: 73 kg

DRUGS (7)
  1. SPIRIVA [Suspect]
     Indication: CHRONIC OBSTRUCTIVE PULMONARY DISEASE
     Dosage: 18 MCG
     Route: 055
     Dates: start: 2012
  2. LASIX [Concomitant]
     Indication: OEDEMA
     Route: 048
  3. ALDACTONE [Concomitant]
     Indication: OEDEMA
     Route: 048
  4. ADVAIR [Concomitant]
     Indication: CHRONIC OBSTRUCTIVE PULMONARY DISEASE
     Dosage: FORMULATION: INHALATION SPRAY
     Route: 055
  5. ERYTHROMYCIN [Concomitant]
     Indication: LIVER DISORDER
     Route: 048
  6. PRANDIN [Concomitant]
     Indication: DIABETES MELLITUS
     Route: 048
  7. KOMBIGLYZE [Concomitant]
     Indication: DIABETES MELLITUS
     Route: 048

REACTIONS (7)
  - Convulsion [Recovered/Resolved]
  - Cerebral haemorrhage [Recovered/Resolved]
  - Fall [Recovered/Resolved]
  - Dyspnoea [Recovered/Resolved]
  - Oropharyngeal pain [Not Recovered/Not Resolved]
  - Product quality issue [Unknown]
  - Product quality issue [Unknown]
